FAERS Safety Report 8538065-8 (Version None)
Quarter: 2012Q3

REPORT INFORMATION
  Report Type: 
  Country: None (occurrence: None)
  Receive Date: 20120725
  Receipt Date: 20120718
  Transmission Date: 20120928
  Serious: Yes (Death, Hospitalization)
  Sender: FDA-Public Use
  Company Number: US-PFIZER INC-2012173869

PATIENT
  Sex: Male
  Weight: 66.5 kg

DRUGS (5)
  1. AXITINIB [Suspect]
     Indication: HEPATIC CANCER METASTATIC
     Dosage: UNK MG, 2X/DAY
     Route: 048
     Dates: start: 20111213, end: 20120403
  2. METOPROLOL [Concomitant]
     Indication: HYPERTENSION
     Dosage: 50 MG, 1X/DAY, EVERY DAY
     Route: 048
  3. DECADRON [Concomitant]
     Indication: INCREASED APPETITE
     Dosage: 2 MG, EVERY OTHER DAY
     Route: 048
     Dates: start: 20120110
  4. NEXIUM [Concomitant]
     Indication: GASTROOESOPHAGEAL REFLUX DISEASE
     Dosage: 40 MG, 1X/DAY, EVERY DAY
     Route: 048
     Dates: start: 20111213
  5. METFORMIN [Concomitant]
     Indication: DIABETES MELLITUS
     Dosage: 500 MG, 1X/DAY, EVERY DAY
     Route: 048
     Dates: start: 20110711

REACTIONS (2)
  - MYOSITIS [None]
  - DEATH [None]
